FAERS Safety Report 20485481 (Version 2)
Quarter: 2024Q1

REPORT INFORMATION
  Report Type: Report from Study
  Country: FR (occurrence: FR)
  Receive Date: 20220217
  Receipt Date: 20240102
  Transmission Date: 20240410
  Serious: Yes (Other)
  Sender: FDA-Public Use
  Company Number: FR-TAKEDA-2021TUS074643

PATIENT
  Age: 8 Year
  Sex: Male

DRUGS (12)
  1. IDURSULFASE [Suspect]
     Active Substance: IDURSULFASE
     Indication: Product used for unknown indication
     Dosage: 5 DOSAGE FORM, 1/WEEK
     Route: 050
     Dates: start: 20200610, end: 20231227
  2. IDURSULFASE [Suspect]
     Active Substance: IDURSULFASE
     Dosage: 8 MILLILITER
     Route: 050
  3. IDURSULFASE [Suspect]
     Active Substance: IDURSULFASE
     Dosage: 16 MILLILITER
     Route: 050
  4. IDURSULFASE [Suspect]
     Active Substance: IDURSULFASE
     Dosage: 24 MILLILITER
     Route: 050
  5. IDURSULFASE [Suspect]
     Active Substance: IDURSULFASE
     Dosage: 32 MILLILITER
     Route: 050
  6. IDURSULFASE [Suspect]
     Active Substance: IDURSULFASE
     Dosage: 80 MILLILITER
     Route: 050
  7. IDURSULFASE [Suspect]
     Active Substance: IDURSULFASE
     Indication: Product used for unknown indication
     Dosage: 5 DOSAGE FORM, 1/WEEK
     Route: 050
     Dates: start: 20200610, end: 20231227
  8. IDURSULFASE [Suspect]
     Active Substance: IDURSULFASE
     Dosage: 8 MILLILITER
     Route: 050
  9. IDURSULFASE [Suspect]
     Active Substance: IDURSULFASE
     Dosage: 16 MILLILITER
     Route: 050
  10. IDURSULFASE [Suspect]
     Active Substance: IDURSULFASE
     Dosage: 24 MILLILITER
     Route: 050
  11. IDURSULFASE [Suspect]
     Active Substance: IDURSULFASE
     Dosage: 32 MILLILITER
     Route: 050
  12. IDURSULFASE [Suspect]
     Active Substance: IDURSULFASE
     Dosage: 80 MILLILITER
     Route: 050

REACTIONS (3)
  - COVID-19 [Recovered/Resolved]
  - Weight increased [Recovered/Resolved]
  - Weight decreased [Unknown]

NARRATIVE: CASE EVENT DATE: 20211119
